FAERS Safety Report 5288151-3 (Version None)
Quarter: 2007Q2

REPORT INFORMATION
  Report Type: 
  Country: None (occurrence: None)
  Receive Date: 20070405
  Receipt Date: 20070330
  Transmission Date: 20071010
  Serious: Yes (Hospitalization)
  Sender: FDA-Public Use
  Company Number: US-BRACCO-BDI-009236

PATIENT
  Age: 57 Year
  Sex: Female

DRUGS (1)
  1. MULTIHANCE [Suspect]
     Indication: NUCLEAR MAGNETIC RESONANCE IMAGING BRAIN
     Route: 042
     Dates: start: 20070313, end: 20070313

REACTIONS (13)
  - CAROTID PULSE DECREASED [None]
  - CONFUSIONAL STATE [None]
  - COUGH [None]
  - CYANOSIS [None]
  - EYE ROLLING [None]
  - FLUSHING [None]
  - HYPERHIDROSIS [None]
  - LOSS OF CONSCIOUSNESS [None]
  - PARTIAL SEIZURES [None]
  - RADIAL PULSE ABNORMAL [None]
  - RESPIRATORY ARREST [None]
  - TACHYCARDIA [None]
  - THROAT IRRITATION [None]
